FAERS Safety Report 6789758-4 (Version None)
Quarter: 2010Q2

REPORT INFORMATION
  Report Type: 
  Country: None (occurrence: None)
  Receive Date: 20100624
  Receipt Date: 20100616
  Transmission Date: 20101027
  Serious: Yes (Other)
  Sender: FDA-Public Use
  Company Number: US-PFIZER INC-2010076090

PATIENT
  Sex: Female
  Weight: 68.027 kg

DRUGS (19)
  1. LIPITOR [Suspect]
     Indication: BLOOD CHOLESTEROL INCREASED
     Dosage: 10 MG, 1X/DAY
     Route: 048
     Dates: start: 20100101, end: 20100101
  2. SYNTHROID [Concomitant]
     Indication: THYROID DISORDER
     Dosage: UNK
  3. GINKGO BILOBA [Concomitant]
     Indication: MEMORY IMPAIRMENT
     Dosage: UNK
  4. CICLOSPORIN [Concomitant]
     Indication: EYE DISORDER
     Dosage: UNK
     Route: 047
  5. LISINOPRIL [Concomitant]
     Dosage: UNK
  6. NORVASC [Concomitant]
     Dosage: UNK
  7. ZOLOFT [Concomitant]
     Dosage: UNK
  8. BUSPAR [Concomitant]
     Dosage: UNK
  9. ACETYLSALICYLIC ACID [Concomitant]
     Dosage: UNK
  10. XANAX [Concomitant]
     Dosage: 2 MG, UNK
  11. SEROQUEL [Concomitant]
     Dosage: UNK
  12. REMERON [Concomitant]
     Dosage: UNK
  13. RESTORIL [Concomitant]
     Dosage: UNK
  14. GLUCOSAMINE W/CHONDROITIN SULFATES [Concomitant]
     Dosage: UNK
  15. CALCIUM W/MAGNESIUM [Concomitant]
     Dosage: UNK
  16. CALCIUM CITRATE/COLECALCIFEROL [Concomitant]
     Dosage: UNK
  17. COENZYME Q10 [Concomitant]
     Dosage: UNK
  18. LYCOPENE [Concomitant]
     Dosage: UNK
  19. LOVAZA [Concomitant]
     Dosage: UNK

REACTIONS (4)
  - CONFUSIONAL STATE [None]
  - COORDINATION ABNORMAL [None]
  - MALAISE [None]
  - MUSCULAR WEAKNESS [None]
